FAERS Safety Report 18710238 (Version 2)
Quarter: 2025Q2

REPORT INFORMATION
  Report Type: Spontaneous
  Country: IT (occurrence: IT)
  Receive Date: 20210107
  Receipt Date: 20250629
  Transmission Date: 20250716
  Serious: Yes (Death, Hospitalization, Other)
  Sender: AUROBINDO
  Company Number: IT-PFM-2020-22454

PATIENT
  Age: 75 Year
  Sex: Male

DRUGS (6)
  1. AZITHROMYCIN [Suspect]
     Active Substance: AZITHROMYCIN
     Indication: Antibiotic prophylaxis
     Route: 065
  2. PIPERACILLIN AND TAZOBACTAM [Suspect]
     Active Substance: PIPERACILLIN SODIUM\TAZOBACTAM SODIUM
     Indication: COVID-19
     Route: 065
  3. HYDROXYCHLOROQUINE [Suspect]
     Active Substance: HYDROXYCHLOROQUINE
     Indication: COVID-19
     Route: 065
  4. LOPINAVIR\RITONAVIR [Suspect]
     Active Substance: LOPINAVIR\RITONAVIR
     Indication: COVID-19
     Route: 065
  5. OSELTAMIVIR [Suspect]
     Active Substance: OSELTAMIVIR
     Indication: COVID-19
     Route: 065
  6. DURVALUMAB [Concomitant]
     Active Substance: DURVALUMAB
     Indication: Chemotherapy
     Route: 065

REACTIONS (3)
  - Respiratory failure [Fatal]
  - Drug interaction [Unknown]
  - Condition aggravated [Unknown]
